FAERS Safety Report 7737624-X (Version None)
Quarter: 2011Q3

REPORT INFORMATION
  Report Type: 
  Country: None (occurrence: None)
  Receive Date: 20110908
  Receipt Date: 20110829
  Transmission Date: 20111222
  Serious: Yes (Other)
  Sender: FDA-Public Use
  Company Number: US-BAYER-201028641NA

PATIENT
  Age: 27 Year
  Sex: Female
  Weight: 83.9 kg

DRUGS (7)
  1. YASMIN [Suspect]
     Indication: PRODUCT USED FOR UNKNOWN INDICATION
     Dosage: UNK
     Route: 048
     Dates: start: 20040401, end: 20061001
  2. PHENTERMINE [Concomitant]
  3. CITALOPRAM HYDROBROMIDE [Concomitant]
     Dosage: UNK
     Dates: start: 20041201, end: 20090801
  4. LORTAB [Concomitant]
  5. YAZ [Suspect]
     Dosage: UNK
     Dates: start: 20080301, end: 20091001
  6. YAZ [Suspect]
     Indication: PRODUCT USED FOR UNKNOWN INDICATION
     Dosage: UNK
     Route: 048
     Dates: start: 20061001, end: 20071101
  7. CELEXA [Concomitant]

REACTIONS (2)
  - GALLBLADDER DISORDER [None]
  - BILIARY DYSKINESIA [None]
